FAERS Safety Report 5352011-X (Version None)
Quarter: 2007Q2

REPORT INFORMATION
  Report Type: 
  Country: None (occurrence: None)
  Receive Date: 20070611
  Receipt Date: 20070607
  Transmission Date: 20071010
  Serious: Yes (Life-Threatening)
  Sender: FDA-Public Use
  Company Number: PHFR2007GB01828

PATIENT
  Age: 55 Year
  Sex: Male

DRUGS (3)
  1. DIHYDROCODEINE BITARTRATE INJ [Concomitant]
     Indication: PAIN
     Dosage: 2 DF, QD
     Route: 048
     Dates: start: 20070102
  2. PARACETAMOL [Concomitant]
     Indication: PAIN
     Dosage: 2 DF, BID
     Route: 048
     Dates: start: 20070102
  3. DICLOFENAC [Suspect]
     Indication: RHEUMATOID ARTHRITIS
     Dosage: 50MG
     Route: 048
     Dates: start: 20070121, end: 20070420

REACTIONS (1)
  - NEUTROPENIA [None]
